FAERS Safety Report 9710596 (Version 2)
Quarter: 2013Q4

REPORT INFORMATION
  Report Type: Spontaneous
  Country: GB (occurrence: GB)
  Receive Date: 20131126
  Receipt Date: 20131216
  Transmission Date: 20140711
  Serious: Yes (Death, Other)
  Sender: FDA-Public Use
  Company Number: GB-JNJFOC-20131106884

PATIENT
  Sex: 0

DRUGS (8)
  1. SPORANOX [Suspect]
     Indication: ANTIFUNGAL PROPHYLAXIS
     Route: 048
  2. SPORANOX [Suspect]
     Indication: ANTIFUNGAL PROPHYLAXIS
     Dosage: FOR UPTO 14 DAY
     Route: 048
  3. SPORANOX [Suspect]
     Indication: ANTIFUNGAL PROPHYLAXIS
     Route: 042
  4. VORICONAZOLE [Suspect]
     Indication: ANTIFUNGAL PROPHYLAXIS
     Dosage: TABLETS OR ORAL SUSPENSION AT A DOSE OF 200 MG TWICE DAILY, 6MG/KG
     Route: 048
  5. AMPHOTERICIN B [Suspect]
     Indication: ANTIFUNGAL PROPHYLAXIS
     Route: 065
  6. CASPOFUNGIN [Suspect]
     Indication: ANTIFUNGAL PROPHYLAXIS
     Route: 065
  7. POSACONAZOLE [Suspect]
     Indication: ANTIFUNGAL PROPHYLAXIS
     Route: 065
  8. FLUCONAZOLE [Suspect]
     Indication: ANTIFUNGAL PROPHYLAXIS
     Route: 065

REACTIONS (11)
  - Aspergillus infection [Fatal]
  - Hepatotoxicity [Unknown]
  - Visual impairment [Recovered/Resolved]
  - Diarrhoea [Unknown]
  - Nausea [Unknown]
  - Pyrexia [Unknown]
  - Headache [Unknown]
  - Mucosal inflammation [Unknown]
  - Vomiting [Unknown]
  - Liver function test abnormal [Unknown]
  - Drug intolerance [Unknown]
